FAERS Safety Report 13691888 (Version 1)
Quarter: 2017Q2

REPORT INFORMATION
  Report Type: Spontaneous
  Country: US (occurrence: US)
  Receive Date: 20170626
  Receipt Date: 20170626
  Transmission Date: 20170830
  Serious: Yes (Other)
  Sender: FDA-Public Use
  Company Number: US-BRACCO-013799

PATIENT
  Age: 67 Year
  Sex: Female

DRUGS (1)
  1. MULTIHANCE [Suspect]
     Active Substance: GADOBENATE DIMEGLUMINE
     Indication: NUCLEAR MAGNETIC RESONANCE IMAGING
     Route: 042
     Dates: start: 20160718, end: 20160718

REACTIONS (6)
  - Off label use [Unknown]
  - Oedema mouth [Unknown]
  - Pharyngeal oedema [Unknown]
  - Dysphagia [Unknown]
  - Throat irritation [Unknown]
  - Feeling hot [Unknown]

NARRATIVE: CASE EVENT DATE: 20160718
